FAERS Safety Report 15803913 (Version 3)
Quarter: 2020Q3

REPORT INFORMATION
  Report Type: Spontaneous
  Country: US (occurrence: US)
  Receive Date: 20190109
  Receipt Date: 20200915
  Transmission Date: 20201102
  Serious: Yes (Other)
  Sender: FDA-Public Use
  Company Number: US-BRISTOL-MYERS SQUIBB COMPANY-BMS-2019-000616

PATIENT
  Sex: Female
  Weight: 82.54 kg

DRUGS (2)
  1. SYNTHROID [Concomitant]
     Active Substance: LEVOTHYROXINE SODIUM
     Indication: PRODUCT USED FOR UNKNOWN INDICATION
     Dosage: UNK
     Route: 065
  2. ORENCIA [Suspect]
     Active Substance: ABATACEPT
     Indication: SPONDYLITIS
     Dosage: 250 MG, QMO
     Route: 042
     Dates: start: 201808

REACTIONS (17)
  - Dizziness [Unknown]
  - Headache [Unknown]
  - Depression [Unknown]
  - Contusion [Unknown]
  - Pyrexia [Unknown]
  - Insomnia [Unknown]
  - Gastritis [Unknown]
  - Respiratory disorder [Unknown]
  - Respiratory tract infection [Unknown]
  - Night sweats [Unknown]
  - Agitation [Unknown]
  - Drug ineffective [Unknown]
  - Intentional product use issue [Unknown]
  - Pain [Unknown]
  - Nausea [Unknown]
  - Fatigue [Unknown]
  - Menstruation irregular [Unknown]
